FAERS Safety Report 14432625 (Version 2)
Quarter: 2018Q1

REPORT INFORMATION
  Report Type: Report from Study
  Country: TR (occurrence: TR)
  Receive Date: 20180124
  Receipt Date: 20180128
  Transmission Date: 20180509
  Serious: Yes (Death, Other)
  Sender: FDA-Public Use
  Company Number: PHHY2018TR010741

PATIENT
  Age: 63 Year
  Sex: Female
  Weight: 68 kg

DRUGS (1)
  1. LBH589 [Suspect]
     Active Substance: PANOBINOSTAT
     Indication: PLASMA CELL MYELOMA
     Dosage: 15 MG, UNK
     Route: 048
     Dates: start: 20170804, end: 20170818

REACTIONS (5)
  - Plasmacytoma [Fatal]
  - Somnolence [Fatal]
  - Altered state of consciousness [Fatal]
  - Platelet count decreased [Unknown]
  - Confusional state [Fatal]

NARRATIVE: CASE EVENT DATE: 20171023
